FAERS Safety Report 17193970 (Version 2)
Quarter: 2020Q1

REPORT INFORMATION
  Report Type: Spontaneous
  Country: US (occurrence: US)
  Receive Date: 20191223
  Receipt Date: 20200205
  Transmission Date: 20200409
  Serious: Yes (Other)
  Sender: FDA-Public Use
  Company Number: US-BRISTOL-MYERS SQUIBB COMPANY-BMS-2019-122718

PATIENT
  Age: 82 Year
  Sex: Male

DRUGS (1)
  1. ELIQUIS [Suspect]
     Active Substance: APIXABAN
     Indication: CEREBROVASCULAR ACCIDENT PROPHYLAXIS
     Dosage: 5 MILLIGRAM
     Route: 065
     Dates: start: 2005

REACTIONS (8)
  - Heart rate irregular [Unknown]
  - Back disorder [Unknown]
  - Fall [Unknown]
  - Thrombosis [Unknown]
  - Arthropathy [Unknown]
  - Malaise [Unknown]
  - Head injury [Unknown]
  - Gait disturbance [Unknown]

NARRATIVE: CASE EVENT DATE: 20191118
